FAERS Safety Report 9570182 (Version 1)
Quarter: 2013Q3

REPORT INFORMATION
  Report Type: Spontaneous
  Country: US (occurrence: US)
  Receive Date: 20130930
  Receipt Date: 20130930
  Transmission Date: 20140515
  Serious: Yes (Other)
  Sender: FDA-Public Use
  Company Number: US-AMGEN-USASP2013064202

PATIENT
  Sex: Male

DRUGS (1)
  1. ENBREL [Suspect]
     Indication: PSORIATIC ARTHROPATHY
     Dosage: 50 MG, QMO
     Route: 065
     Dates: start: 2003

REACTIONS (5)
  - Convulsion [Recovered/Resolved]
  - Depression [Not Recovered/Not Resolved]
  - Photopsia [Recovered/Resolved]
  - Urinary incontinence [Recovered/Resolved]
  - Mood altered [Not Recovered/Not Resolved]
